FAERS Safety Report 5881230-9 (Version None)
Quarter: 2008Q3

REPORT INFORMATION
  Report Type: 
  Country: None (occurrence: None)
  Receive Date: 20080912
  Receipt Date: 20080624
  Transmission Date: 20090109
  Serious: No
  Sender: FDA-Public Use
  Company Number: US-ABBOTT-08P-163-0459462-00

PATIENT
  Sex: Male
  Weight: 95.34 kg

DRUGS (3)
  1. HUMIRA [Suspect]
     Indication: PSORIASIS
     Route: 058
     Dates: start: 20071101
  2. FLUOXETINE [Concomitant]
     Indication: DRUG USE FOR UNKNOWN INDICATION
     Route: 048
  3. ZOLPIDEM TARTRATE [Concomitant]
     Indication: INSOMNIA
     Route: 048

REACTIONS (5)
  - ACCIDENTAL EXPOSURE [None]
  - INJECTION SITE PAIN [None]
  - OEDEMA PERIPHERAL [None]
  - PROCEDURAL COMPLICATION [None]
  - PSORIASIS [None]
